FAERS Safety Report 11340344 (Version 1)
Quarter: 2015Q3

REPORT INFORMATION
  Report Type: Spontaneous
  Country: US (occurrence: None)
  Receive Date: 20150803
  Receipt Date: 20150803
  Transmission Date: 20151125
  Serious: Yes (Hospitalization)
  Sender: FDA-Public Use
  Company Number: NSR_02184_2015

PATIENT
  Age: 47 Year
  Sex: Female

DRUGS (2)
  1. BACLOFEN. [Suspect]
     Active Substance: BACLOFEN
     Indication: MYOCLONUS
     Dosage: AS NEEDED
     Route: 048
  2. GABAPENTIN. [Suspect]
     Active Substance: GABAPENTIN
     Indication: PRODUCT USED FOR UNKNOWN INDICATION

REACTIONS (6)
  - Hypertensive crisis [None]
  - Toxicity to various agents [None]
  - Generalised tonic-clonic seizure [None]
  - Mental status changes [None]
  - Unresponsive to stimuli [None]
  - Respiratory failure [None]
